FAERS Safety Report 5157744-6 (Version None)
Quarter: 2006Q4

REPORT INFORMATION
  Report Type: 
  Country: None (occurrence: None)
  Receive Date: 20061127
  Receipt Date: 20060912
  Transmission Date: 20070319
  Serious: Yes (Hospitalization)
  Sender: FDA-Public Use
  Company Number: 2006AP04252

PATIENT
  Age: 31137 Day
  Sex: Male

DRUGS (8)
  1. OMPERAZON [Suspect]
     Indication: REFLUX OESOPHAGITIS
     Route: 048
     Dates: start: 20060419, end: 20060826
  2. LIVALO [Suspect]
     Indication: HYPERLIPIDAEMIA
     Route: 048
     Dates: start: 20060713, end: 20060823
  3. ASPIRIN [Concomitant]
     Dates: start: 20040713, end: 20060826
  4. AMLODIPINE [Concomitant]
     Dates: start: 20040713, end: 20060826
  5. BLOPRESS [Concomitant]
     Dates: start: 20040713, end: 20060826
  6. EVIPROSTAT [Concomitant]
     Dates: start: 20040713, end: 20060826
  7. DOGMATYL [Concomitant]
     Dates: start: 20040713, end: 20060826
  8. HALCION [Concomitant]
     Dates: start: 20040713

REACTIONS (1)
  - RHABDOMYOLYSIS [None]
